FAERS Safety Report 23497329 (Version 1)
Quarter: 2024Q1

REPORT INFORMATION
  Report Type: Spontaneous
  Country: US (occurrence: US)
  Receive Date: 20240208
  Receipt Date: 20240208
  Transmission Date: 20240410
  Serious: Yes (Other)
  Sender: FDA-Public Use
  Company Number: US-SANOFI-01927441

PATIENT
  Age: 57 Year
  Sex: Female
  Weight: 85.1 kg

DRUGS (1)
  1. NEXVIAZYME [Suspect]
     Active Substance: AVALGLUCOSIDASE ALFA-NGPT
     Dosage: 1700 MG
     Route: 065

REACTIONS (1)
  - Anaphylactic reaction [Unknown]
